FAERS Safety Report 4449764-1 (Version None)
Quarter: 2004Q3

REPORT INFORMATION
  Report Type: 
  Country: None (occurrence: None)
  Receive Date: 20040913
  Receipt Date: 20040824
  Transmission Date: 20050211
  Serious: Yes (Death)
  Sender: FDA-Public Use
  Company Number: A03200402902

PATIENT
  Age: 40 Year
  Sex: Female

DRUGS (15)
  1. PLAQUENIL [Suspect]
     Dosage: ORAL
     Route: 048
  2. TRACLEER [Suspect]
     Indication: PULMONARY HYPERTENSION
     Dosage: 62.5 MG BID - ORAL
     Route: 048
     Dates: start: 20020916, end: 20021001
  3. TRACLEER [Suspect]
     Indication: SARCOIDOSIS
     Dosage: 62.5 MG BID - ORAL
     Route: 048
     Dates: start: 20020916, end: 20021001
  4. TRACLEER [Suspect]
     Indication: PULMONARY HYPERTENSION
     Dosage: 125 MG BID
     Dates: start: 20021001
  5. TRACLEER [Suspect]
     Indication: SARCOIDOSIS
     Dosage: 125 MG BID
     Dates: start: 20021001
  6. FLUTICASONE + SALMETEROL [Concomitant]
  7. WARFARIN SODIUM [Concomitant]
  8. IPATROPIUM BROMIDE [Concomitant]
  9. FLUTICASONE PROPIONATE [Concomitant]
  10. WARFARIN SODIUM [Concomitant]
  11. ESCITALOPRAM OXALATE [Concomitant]
  12. FUROSEMIDE [Concomitant]
  13. POTASSIUM CHLORIDE [Concomitant]
  14. METOLAZONE [Concomitant]
  15. PREDNISONE [Concomitant]

REACTIONS (7)
  - ALANINE AMINOTRANSFERASE INCREASED [None]
  - ASPARTATE AMINOTRANSFERASE INCREASED [None]
  - DYSPNOEA [None]
  - LIVER FUNCTION TEST ABNORMAL [None]
  - REFUSAL OF TREATMENT BY PATIENT [None]
  - RIGHT VENTRICULAR FAILURE [None]
  - SEPSIS [None]
